FAERS Safety Report 7710692-7 (Version None)
Quarter: 2011Q3

REPORT INFORMATION
  Report Type: 
  Country: None (occurrence: None)
  Receive Date: 20110825
  Receipt Date: 20110822
  Transmission Date: 20111222
  Serious: No
  Sender: FDA-Public Use
  Company Number: US-PFIZER INC-2011194299

PATIENT
  Sex: Female
  Weight: 72.562 kg

DRUGS (1)
  1. PRISTIQ [Suspect]
     Indication: DEPRESSION
     Dosage: 50 MG, 1X/DAY
     Route: 048
     Dates: start: 20110815

REACTIONS (3)
  - SOMNOLENCE [None]
  - FEELING ABNORMAL [None]
  - ABDOMINAL DISCOMFORT [None]
